FAERS Safety Report 18409133 (Version 1)
Quarter: 2020Q4

REPORT INFORMATION
  Report Type: Spontaneous
  Country: US (occurrence: US)
  Receive Date: 20201020
  Receipt Date: 20201020
  Transmission Date: 20210114
  Serious: Yes (Other)
  Sender: FDA-Public Use
  Company Number: None

PATIENT
  Age: 67 Year
  Sex: Male
  Weight: 84.8 kg

DRUGS (14)
  1. NORTRIPTYLINE [Concomitant]
     Active Substance: NORTRIPTYLINE
  2. ONDANSETRON [Concomitant]
     Active Substance: ONDANSETRON
  3. CARISOPRODOL. [Concomitant]
     Active Substance: CARISOPRODOL
  4. ATENOLOL. [Concomitant]
     Active Substance: ATENOLOL
  5. TESTOSTERONE CYPIONATE. [Concomitant]
     Active Substance: TESTOSTERONE CYPIONATE
  6. VITAMIN C [Concomitant]
     Active Substance: ASCORBIC ACID
  7. SERTRALINE [Concomitant]
     Active Substance: SERTRALINE HYDROCHLORIDE
  8. TURMERIC [Concomitant]
     Active Substance: HERBALS\TURMERIC
  9. TAMSULOSIN [Concomitant]
     Active Substance: TAMSULOSIN
  10. ARMOUR THYROID [Concomitant]
     Active Substance: THYROID, PORCINE
  11. MULTIVITAMIN [Concomitant]
     Active Substance: VITAMINS
  12. SUCRALFATE. [Concomitant]
     Active Substance: SUCRALFATE
  13. CAPECITABINE. [Suspect]
     Active Substance: CAPECITABINE
     Indication: OESOPHAGEAL CARCINOMA
     Route: 048
     Dates: start: 20201006, end: 20201007
  14. HYDROCODONE/ACETAMINOPHEN [Concomitant]
     Active Substance: ACETAMINOPHEN\HYDROCODONE

REACTIONS (11)
  - Intraocular pressure increased [None]
  - Urinary retention [None]
  - Haematemesis [None]
  - Hypophagia [None]
  - Acute kidney injury [None]
  - Fluid intake reduced [None]
  - Vomiting [None]
  - Hyperhidrosis [None]
  - Pain in jaw [None]
  - Gastrooesophageal reflux disease [None]
  - Chills [None]

NARRATIVE: CASE EVENT DATE: 20201007
